FAERS Safety Report 5413743-8 (Version None)
Quarter: 2007Q3

REPORT INFORMATION
  Report Type: 
  Country: None (occurrence: None)
  Receive Date: 20070814
  Receipt Date: 20070809
  Transmission Date: 20080115
  Serious: Yes (Hospitalization)
  Sender: FDA-Public Use
  Company Number: FR-MERCK-0708FRA00019

PATIENT
  Age: 68 Year
  Sex: Female

DRUGS (3)
  1. INDOCIN [Suspect]
     Route: 048
     Dates: start: 20070707, end: 20070707
  2. INDAPAMIDE AND PERINDOPRIL ERBUMINE [Concomitant]
     Indication: HYPERTENSION
     Route: 048
  3. GLICLAZIDE [Concomitant]
     Indication: TYPE 2 DIABETES MELLITUS
     Route: 048

REACTIONS (3)
  - PAINFUL RESPIRATION [None]
  - SUFFOCATION FEELING [None]
  - TREMOR [None]
